FAERS Safety Report 24124322 (Version 1)
Quarter: 2024Q3

REPORT INFORMATION
  Report Type: Report from Study
  Country: BR (occurrence: None)
  Receive Date: 20240723
  Receipt Date: 20240723
  Transmission Date: 20241017
  Serious: Yes (Hospitalization)
  Sender: ASTRAZENECA
  Company Number: 2022A230127

PATIENT
  Sex: Female
  Weight: 57 kg

DRUGS (1)
  1. FASENRA [Suspect]
     Active Substance: BENRALIZUMAB
     Route: 058

REACTIONS (3)
  - COVID-19 [Unknown]
  - Anaemia [Unknown]
  - Asthma [Unknown]

NARRATIVE: CASE EVENT DATE: 20220122
